FAERS Safety Report 18098193 (Version 1)
Quarter: 2020Q3

REPORT INFORMATION
  Report Type: Spontaneous
  Country: US (occurrence: US)
  Receive Date: 20200731
  Receipt Date: 20200731
  Transmission Date: 20201103
  Serious: Yes (Death, Disabling, Other)
  Sender: FDA-Public Use
  Company Number: US-EMCURE PHARMACEUTICALS LTD-2020-EPL-000970

PATIENT

DRUGS (1)
  1. ACETAMINOPHEN. [Suspect]
     Active Substance: ACETAMINOPHEN
     Indication: PRODUCT USED FOR UNKNOWN INDICATION

REACTIONS (14)
  - Death [Fatal]
  - Insomnia [Unknown]
  - Fatigue [Unknown]
  - Blindness [Unknown]
  - Hallucination [Unknown]
  - Decreased appetite [Unknown]
  - General physical health deterioration [Unknown]
  - Gait inability [Unknown]
  - Crying [Unknown]
  - Constipation [Unknown]
  - Sleep disorder [Unknown]
  - Dependence [Unknown]
  - Faeces hard [Unknown]
  - Abnormal behaviour [Unknown]
